FAERS Safety Report 21916075 (Version 1)
Quarter: 2023Q1

REPORT INFORMATION
  Report Type: Spontaneous
  Country: IT (occurrence: IT)
  Receive Date: 20230126
  Receipt Date: 20230126
  Transmission Date: 20230418
  Serious: Yes (Other)
  Sender: FDA-Public Use
  Company Number: None

PATIENT
  Age: 71 Year
  Sex: Male

DRUGS (1)
  1. LINEZOLID [Suspect]
     Active Substance: LINEZOLID
     Indication: Product used for unknown indication
     Dosage: 600 MG OGNI 12 ORE
     Route: 048
     Dates: start: 20221118, end: 20221127

REACTIONS (4)
  - Encephalopathy [Not Recovered/Not Resolved]
  - Confusional state [Recovering/Resolving]
  - Agitation [Recovering/Resolving]
  - Disorganised speech [Recovering/Resolving]

NARRATIVE: CASE EVENT DATE: 20221126
